FAERS Safety Report 6359693-4 (Version None)
Quarter: 2009Q3

REPORT INFORMATION
  Report Type: 
  Country: None (occurrence: None)
  Receive Date: 20090917
  Receipt Date: 20090904
  Transmission Date: 20100115
  Serious: Yes (Disabling)
  Sender: FDA-Public Use
  Company Number: AU-PFIZER INC-2009258381

PATIENT
  Age: 19 Year

DRUGS (5)
  1. ZELDOX [Suspect]
     Indication: BIPOLAR I DISORDER
     Dosage: 40 MG, 2X/DAY
     Route: 048
     Dates: start: 20090818
  2. RISPERIDONE [Concomitant]
     Indication: PSYCHOTIC DISORDER
     Dosage: 2 MG, 1X/DAY AT NIGHT
     Route: 048
     Dates: start: 20090101, end: 20090826
  3. VALPROATE SODIUM [Concomitant]
     Indication: BIPOLAR DISORDER
     Dosage: 1 G, 2X/DAY
     Route: 048
     Dates: start: 20071201
  4. CIPRAMIL [Concomitant]
     Indication: BIPOLAR I DISORDER
     Dosage: 20 MG, UNK
     Route: 048
     Dates: start: 20090401, end: 20090814
  5. DIAZEPAM [Concomitant]
     Indication: ANXIETY
     Dosage: INFREQUENT
     Route: 048
     Dates: start: 20090805

REACTIONS (5)
  - EMOTIONAL DISTRESS [None]
  - FATIGUE [None]
  - INSOMNIA [None]
  - MENTAL DISORDER [None]
  - NIGHTMARE [None]
